FAERS Safety Report 17179518 (Version 1)
Quarter: 2019Q4

REPORT INFORMATION
  Report Type: Spontaneous
  Country: US (occurrence: US)
  Receive Date: 20191219
  Receipt Date: 20191219
  Transmission Date: 20200122
  Serious: No
  Sender: FDA-Public Use
  Company Number: US-BAYER-2019-231978

PATIENT
  Age: 34 Year
  Sex: Female

DRUGS (3)
  1. MIRALAX [Suspect]
     Active Substance: POLYETHYLENE GLYCOL 3350
     Indication: COLONOSCOPY
     Route: 048
     Dates: start: 20191216
  2. VITAMINS NOS [Concomitant]
     Active Substance: VITAMINS
  3. PHILLIPS^ LIQUID GELS STOOL SOFTENER [Suspect]
     Active Substance: DOCUSATE SODIUM
     Indication: COLONOSCOPY
     Dosage: UNK
     Route: 048
     Dates: start: 20191216, end: 20191217

REACTIONS (4)
  - Vomiting [Recovered/Resolved]
  - Off label use [Unknown]
  - Abdominal pain upper [Unknown]
  - Product use in unapproved indication [Unknown]

NARRATIVE: CASE EVENT DATE: 2019
